FAERS Safety Report 7289362-8 (Version None)
Quarter: 2011Q1

REPORT INFORMATION
  Report Type: 
  Country: None (occurrence: None)
  Receive Date: 20110211
  Receipt Date: 20110203
  Transmission Date: 20110831
  Serious: Yes (Other)
  Sender: FDA-Public Use
  Company Number: CH-PFIZER INC-2011026917

PATIENT
  Sex: Female

DRUGS (1)
  1. PREGABALIN [Suspect]
     Dosage: UNK

REACTIONS (4)
  - SWELLING FACE [None]
  - PHARYNGEAL OEDEMA [None]
  - SWOLLEN TONGUE [None]
  - RESPIRATORY DISORDER [None]
